FAERS Safety Report 10986988 (Version 1)
Quarter: 2015Q2

REPORT INFORMATION
  Report Type: Spontaneous
  Country: US (occurrence: None)
  Receive Date: 20150402
  Receipt Date: 20150402
  Transmission Date: 20150821
  Serious: Yes (Life-Threatening)
  Sender: FDA-Public Use
  Company Number: FK201501566

PATIENT
  Age: 4 Year

DRUGS (3)
  1. ROCURONIUM (MANUFACTURER UNKNOWN) (ROCURONIUM) (ROCURONIUM) [Suspect]
     Active Substance: ROCURONIUM BROMIDE
     Indication: NEUROMUSCULAR BLOCKADE
     Dosage: 1 MG/KG, 1 IN 1 D, INTRAVENOUS DRIP?
     Route: 041
  2. PROPOFOL. [Concomitant]
     Active Substance: PROPOFOL
  3. REMIFENTANIL [Concomitant]
     Active Substance: REMIFENTANIL

REACTIONS (2)
  - Pulmonary function test decreased [None]
  - Forced expiratory flow decreased [None]
